FAERS Safety Report 21386814 (Version 1)
Quarter: 2022Q3

REPORT INFORMATION
  Report Type: Spontaneous
  Country: US (occurrence: None)
  Receive Date: 20220926
  Receipt Date: 20220926
  Transmission Date: 20221027
  Serious: Yes (Death)
  Sender: FDA-Public Use
  Company Number: None

PATIENT
  Age: 51 Year
  Sex: Female

DRUGS (1)
  1. AMBRISENTAN [Suspect]
     Active Substance: AMBRISENTAN
     Indication: Pulmonary arterial hypertension
     Dosage: FREQUENCY : DAILY;?
     Route: 048
     Dates: start: 20120820, end: 20220907

REACTIONS (6)
  - Syncope [None]
  - Agonal respiration [None]
  - Hypotension [None]
  - Bradycardia [None]
  - Mental impairment [None]
  - Pulseless electrical activity [None]

NARRATIVE: CASE EVENT DATE: 20220907
